FAERS Safety Report 11283385 (Version 3)
Quarter: 2015Q3

REPORT INFORMATION
  Report Type: Report from Study
  Country: FR (occurrence: FR)
  Receive Date: 20150720
  Receipt Date: 20150828
  Transmission Date: 20151125
  Serious: Yes (Death, Hospitalization)
  Sender: FDA-Public Use
  Company Number: FR-ACTELION-A-CH2015-120721

PATIENT
  Age: 60 Year
  Sex: Male
  Weight: 69 kg

DRUGS (4)
  1. TRACLEER [Suspect]
     Active Substance: BOSENTAN
     Dosage: 62.5 MG, BID
     Route: 048
     Dates: start: 201112, end: 20120619
  2. TRACLEER [Suspect]
     Active Substance: BOSENTAN
     Dosage: 62.5 MG, BID
     Route: 048
     Dates: start: 20111012, end: 201112
  3. EPOPROSTENOL. [Concomitant]
     Active Substance: EPOPROSTENOL
  4. TRACLEER [Suspect]
     Active Substance: BOSENTAN
     Indication: SCLERODERMA ASSOCIATED DIGITAL ULCER
     Dosage: UNK
     Route: 048
     Dates: start: 20070116

REACTIONS (10)
  - Malignant dysphagia [Unknown]
  - Hip arthroplasty [Unknown]
  - General physical health deterioration [Fatal]
  - Mediastinal abscess [Fatal]
  - Oesophageal neoplasm [Fatal]
  - Oesophageal perforation [Unknown]
  - Sepsis [Unknown]
  - Tracheal stenosis [Fatal]
  - Fungal infection [Unknown]
  - Aspiration [Unknown]

NARRATIVE: CASE EVENT DATE: 201112
